FAERS Safety Report 5874649-3 (Version None)
Quarter: 2008Q3

REPORT INFORMATION
  Report Type: 
  Country: None (occurrence: None)
  Receive Date: 20080909
  Receipt Date: 20080902
  Transmission Date: 20090109
  Serious: Yes (Life-Threatening, Hospitalization, Other)
  Sender: FDA-Public Use
  Company Number: DE-TEVA-176830ISR

PATIENT
  Sex: Male

DRUGS (2)
  1. FLUOROURACIL [Suspect]
     Indication: CHEMOTHERAPY
     Dates: start: 20080602, end: 20080607
  2. GRANISETRON HCL [Concomitant]
     Indication: PROCEDURAL NAUSEA
     Route: 042
     Dates: start: 20080605

REACTIONS (3)
  - CARDIAC ARREST [None]
  - HYPOXIC ENCEPHALOPATHY [None]
  - SHOCK [None]
